FAERS Safety Report 7337968-X (Version None)
Quarter: 2011Q1

REPORT INFORMATION
  Report Type: 
  Country: None (occurrence: None)
  Receive Date: 20110308
  Receipt Date: 20110303
  Transmission Date: 20110831
  Serious: Yes (Hospitalization)
  Sender: FDA-Public Use
  Company Number: DE-ROCHE-763591

PATIENT
  Age: 79 Year
  Sex: Female
  Weight: 93 kg

DRUGS (2)
  1. RAMIPRIL [Concomitant]
     Indication: HYPERTENSION
  2. HERCEPTIN [Suspect]
     Route: 042
     Dates: start: 20101213

REACTIONS (3)
  - CHEST PAIN [None]
  - PERICARDIAL EFFUSION [None]
  - PERICARDITIS [None]
